FAERS Safety Report 14559467 (Version 1)
Quarter: 2018Q1

REPORT INFORMATION
  Report Type: Spontaneous
  Country: FR (occurrence: FR)
  Receive Date: 20180221
  Receipt Date: 20180221
  Transmission Date: 20180509
  Serious: Yes (Other)
  Sender: FDA-Public Use
  Company Number: FR-ELI_LILLY_AND_COMPANY-FR201802008441

PATIENT
  Sex: Female

DRUGS (1)
  1. ZYPREXA [Suspect]
     Active Substance: OLANZAPINE
     Indication: PRODUCT USED FOR UNKNOWN INDICATION
     Dosage: UNK, UNKNOWN
     Route: 065

REACTIONS (7)
  - Exposure during pregnancy [Unknown]
  - Intraocular pressure increased [Unknown]
  - Weight increased [Unknown]
  - Macrocytosis [Unknown]
  - Abortion spontaneous [Unknown]
  - Reproductive tract disorder [Unknown]
  - Amenorrhoea [Unknown]
